FAERS Safety Report 8986685 (Version 1)
Quarter: 2012Q4

REPORT INFORMATION
  Report Type: Spontaneous
  Country: US (occurrence: None)
  Receive Date: 20121219
  Receipt Date: 20121219
  Transmission Date: 20130627
  Serious: Yes (Other)
  Sender: FDA-Public Use
  Company Number: None

PATIENT
  Age: 65 Year
  Sex: Male
  Weight: 64.5 kg

DRUGS (1)
  1. LIPITOR [Suspect]
     Indication: HYPERLIPIDEMIA
     Route: 048

REACTIONS (3)
  - Product substitution issue [None]
  - Myopathy [None]
  - Drug intolerance [None]
